FAERS Safety Report 17841379 (Version 3)
Quarter: 2021Q1

REPORT INFORMATION
  Report Type: Spontaneous
  Country: US (occurrence: US)
  Receive Date: 20200529
  Receipt Date: 20210104
  Transmission Date: 20210419
  Serious: Yes (Other)
  Sender: FDA-Public Use
  Company Number: US-GILEAD-2020-0469343

PATIENT
  Age: 30 Year
  Sex: Female

DRUGS (1)
  1. TRUVADA [Suspect]
     Active Substance: EMTRICITABINE\TENOFOVIR DISOPROXIL FUMARATE
     Indication: HIV INFECTION
     Dosage: UNK
     Route: 048
     Dates: start: 2013, end: 2015

REACTIONS (2)
  - End stage renal disease [Not Recovered/Not Resolved]
  - Chronic kidney disease [Unknown]

NARRATIVE: CASE EVENT DATE: 201801
